FAERS Safety Report 17030853 (Version 2)
Quarter: 2019Q4

REPORT INFORMATION
  Report Type: Report from Study
  Country: GB (occurrence: GB)
  Receive Date: 20191114
  Receipt Date: 20191217
  Transmission Date: 20200122
  Serious: Yes (Hospitalization)
  Sender: FDA-Public Use
  Company Number: NVSC2019GB023459

PATIENT
  Sex: Male

DRUGS (2)
  1. HYRIMOZ [Suspect]
     Active Substance: ADALIMUMAB-ADAZ
     Dosage: UNK UNK, Q2W (PRE-FILLED PEN)
     Route: 065
  2. HYRIMOZ [Suspect]
     Active Substance: ADALIMUMAB-ADAZ
     Indication: ANKYLOSING SPONDYLITIS
     Dosage: UNK UNK, Q2W (PRE-FILLED PEN)
     Route: 065
     Dates: start: 20190923

REACTIONS (7)
  - Gastrooesophageal reflux disease [Unknown]
  - Concomitant disease aggravated [Recovering/Resolving]
  - Abdominal hernia [Unknown]
  - Malaise [Recovering/Resolving]
  - Eating disorder [Unknown]
  - Vomiting [Unknown]
  - Nausea [Unknown]
